FAERS Safety Report 11186624 (Version 3)
Quarter: 2015Q2

REPORT INFORMATION
  Report Type: Spontaneous
  Country: JP (occurrence: JP)
  Receive Date: 20150613
  Receipt Date: 20150619
  Transmission Date: 20150821
  Serious: Yes (Death, Other)
  Sender: FDA-Public Use
  Company Number: PHHY2015JP070419

PATIENT
  Age: 58 Year
  Sex: Male

DRUGS (19)
  1. NOSCAPINE [Suspect]
     Active Substance: NOSCAPINE
     Route: 065
  2. EPHEDRIN [Suspect]
     Active Substance: EPHEDRINE HYDROCHLORIDE
     Indication: NASOPHARYNGITIS
     Route: 065
  3. CLEMASTINE FUMARATE. [Suspect]
     Active Substance: CLEMASTINE FUMARATE
     Indication: NASOPHARYNGITIS
     Route: 065
  4. BENFOTIAMINE [Suspect]
     Active Substance: BENFOTIAMINE
     Indication: INFLUENZA
  5. DIHYDROCODEINE PHOSPHATE [Suspect]
     Active Substance: DIHYDROCODEINE PHOSPHATE
     Indication: NASOPHARYNGITIS
     Route: 065
  6. CAFFEINE. [Suspect]
     Active Substance: CAFFEINE
     Indication: INFLUENZA
  7. DIHYDROCODEINE PHOSPHATE [Suspect]
     Active Substance: DIHYDROCODEINE PHOSPHATE
     Indication: INFLUENZA
  8. BENFOTIAMINE [Suspect]
     Active Substance: BENFOTIAMINE
     Indication: NASOPHARYNGITIS
     Route: 065
  9. PARACETAMOL [Suspect]
     Active Substance: ACETAMINOPHEN
     Indication: NASOPHARYNGITIS
     Route: 065
  10. PARACETAMOL [Suspect]
     Active Substance: ACETAMINOPHEN
     Indication: INFLUENZA
  11. METHYLEPHEDRINE HYDROCHLORIDE [Suspect]
     Active Substance: METHYLEPHEDRINE HYDROCHLORIDE
     Indication: NASOPHARYNGITIS
     Route: 065
  12. METHYLEPHEDRINE HYDROCHLORIDE [Suspect]
     Active Substance: METHYLEPHEDRINE HYDROCHLORIDE
     Indication: INFLUENZA
  13. LYSOZYME HYDROCHLORIDE [Suspect]
     Active Substance: LYSOZYME HYDROCHLORIDE
     Indication: NASOPHARYNGITIS
     Route: 065
  14. CLEMASTINE FUMARATE. [Suspect]
     Active Substance: CLEMASTINE FUMARATE
     Indication: INFLUENZA
  15. CAFFEINE. [Suspect]
     Active Substance: CAFFEINE
     Indication: NASOPHARYNGITIS
     Route: 065
  16. EPHEDRIN [Suspect]
     Active Substance: EPHEDRINE HYDROCHLORIDE
     Indication: INFLUENZA
  17. POTASSIUM GUAIACOLSULFONATE [Suspect]
     Active Substance: POTASSIUM GUAIACOLSULFONATE
     Indication: NASOPHARYNGITIS
     Route: 065
  18. POTASSIUM GUAIACOLSULFONATE [Suspect]
     Active Substance: POTASSIUM GUAIACOLSULFONATE
     Indication: INFLUENZA
  19. LYSOZYME HYDROCHLORIDE [Suspect]
     Active Substance: LYSOZYME HYDROCHLORIDE
     Indication: INFLUENZA

REACTIONS (8)
  - Sepsis [Fatal]
  - Histiocytosis haematophagic [Fatal]
  - Organ failure [Fatal]
  - Drug reaction with eosinophilia and systemic symptoms [Fatal]
  - Fatigue [Unknown]
  - Erythema [Unknown]
  - Pyrexia [Unknown]
  - Oedema [Unknown]
